FAERS Safety Report 5235895-5 (Version None)
Quarter: 2007Q1

REPORT INFORMATION
  Report Type: 
  Country: None (occurrence: None)
  Receive Date: 20061208
  Receipt Date: 20060630
  Transmission Date: 20070707
  Serious: Yes (Other)
  Sender: FDA-Public Use
  Company Number: 2006UW07591

PATIENT
  Age: 55 Year
  Sex: Female
  Weight: 73.2559 kg

DRUGS (9)
  1. CRESTOR [Suspect]
     Indication: BLOOD CHOLESTEROL INCREASED
     Dosage: 5 MG QD PO
     Route: 048
     Dates: start: 20060419
  2. SYNTHROID [Concomitant]
  3. PRINIVIL [Concomitant]
  4. INSULIN [Concomitant]
  5. GLARGINE [Concomitant]
  6. HUMALOG [Concomitant]
  7. OMEGA 3 [Concomitant]
  8. CALCIUM/VITAMIN D [Concomitant]
  9. ASPIRIN [Concomitant]

REACTIONS (1)
  - BLOOD GLUCOSE FLUCTUATION [None]
